FAERS Safety Report 17625335 (Version 3)
Quarter: 2020Q2

REPORT INFORMATION
  Report Type: Spontaneous
  Country: CO (occurrence: CO)
  Receive Date: 20200403
  Receipt Date: 20200610
  Transmission Date: 20200713
  Serious: No
  Sender: FDA-Public Use
  Company Number: CO-BIOMARINAP-CO-2020-129477

PATIENT
  Age: 11 Year
  Sex: Male

DRUGS (1)
  1. BRINEURA [Suspect]
     Active Substance: CERLIPONASE ALFA
     Indication: NEURONAL CEROID LIPOFUSCINOSIS
     Dosage: 300 MILLIGRAM
     Route: 020
     Dates: start: 20190619

REACTIONS (3)
  - CSF glucose decreased [Recovered/Resolved]
  - CSF protein increased [Recovered/Resolved]
  - Pyrexia [Recovered/Resolved]
